FAERS Safety Report 9641584 (Version 5)
Quarter: 2015Q2

REPORT INFORMATION
  Report Type: Spontaneous
  Country: US (occurrence: US)
  Receive Date: 20131023
  Receipt Date: 20150608
  Transmission Date: 20150821
  Serious: Yes (Hospitalization, Other)
  Sender: FDA-Public Use
  Company Number: US-GLAXOSMITHKLINE-A1031557A

PATIENT
  Sex: Female

DRUGS (9)
  1. LOVAZA [Suspect]
     Active Substance: OMEGA-3-ACID ETHYL ESTERS
     Indication: BLOOD CHOLESTEROL ABNORMAL
  2. LOVAZA [Suspect]
     Active Substance: OMEGA-3-ACID ETHYL ESTERS
     Indication: DIABETES MELLITUS
  3. UROCIT-K [Concomitant]
     Active Substance: POTASSIUM CITRATE
  4. ALLOPURINOL. [Concomitant]
     Active Substance: ALLOPURINOL
  5. NOVOLOG [Concomitant]
     Active Substance: INSULIN ASPART
  6. NYSTATIN. [Concomitant]
     Active Substance: NYSTATIN
  7. LOVAZA [Suspect]
     Active Substance: OMEGA-3-ACID ETHYL ESTERS
     Indication: BLOOD TRIGLYCERIDES INCREASED
     Dosage: 2 UNK, BID
     Route: 048
     Dates: start: 20110301
  8. LOSARTAN [Concomitant]
     Active Substance: LOSARTAN
  9. LANTUS [Concomitant]
     Active Substance: INSULIN GLARGINE

REACTIONS (9)
  - Hospitalisation [Unknown]
  - Blood uric acid [Unknown]
  - Cholelithiasis [Unknown]
  - Malaise [Unknown]
  - Drug dose omission [Recovered/Resolved]
  - Gout [Unknown]
  - Hepatic steatosis [Unknown]
  - Therapeutic response unexpected [Unknown]
  - Nephrolithiasis [Unknown]

NARRATIVE: CASE EVENT DATE: 2011
